FAERS Safety Report 26055228 (Version 1)
Quarter: 2025Q4

REPORT INFORMATION
  Report Type: Spontaneous
  Country: CN (occurrence: CN)
  Receive Date: 20251117
  Receipt Date: 20251117
  Transmission Date: 20260117
  Serious: Yes (Other)
  Sender: PFIZER
  Company Number: CN-PFIZER INC-PV202500131764

PATIENT
  Age: 51 Year
  Weight: 75 kg

DRUGS (6)
  1. TIGECYCLINE [Suspect]
     Active Substance: TIGECYCLINE
     Dosage: DOUBLED DOSE OF TIGECYCLINE 100 MG Q12H
     Route: 041
  2. AMIKACIN [Concomitant]
     Active Substance: AMIKACIN
     Dosage: 200 MG, 2X/DAY (Q12H)
     Route: 041
  3. MIDAZOLAM [Concomitant]
     Active Substance: MIDAZOLAM
     Indication: Epilepsy
     Dosage: 50 MG
     Route: 041
  4. PHENOBARBITAL [Concomitant]
     Active Substance: PHENOBARBITAL
     Indication: Epilepsy
     Dosage: 0.1 G
     Route: 030
  5. LEVETIRACETAM [Concomitant]
     Active Substance: LEVETIRACETAM
     Indication: Epilepsy
     Dosage: 500 MG, 2X/DAY
  6. MEROPENEM [Concomitant]
     Active Substance: MEROPENEM
     Dosage: 1 G, 3X/DAY (Q8H)
     Route: 041

REACTIONS (4)
  - Off label use [Unknown]
  - International normalised ratio increased [Unknown]
  - Blood fibrinogen decreased [Unknown]
  - White blood cell count decreased [Unknown]
